FAERS Safety Report 18985885 (Version 1)
Quarter: 2021Q1

REPORT INFORMATION
  Report Type: Other
  Country: DE (occurrence: DE)
  Receive Date: 20210309
  Receipt Date: 20210309
  Transmission Date: 20210420
  Serious: Yes (Other)
  Sender: FDA-Public Use
  Company Number: DE-LUPIN PHARMACEUTICALS INC.-2021-02657

PATIENT
  Age: 27 Year
  Sex: Female
  Weight: 52 kg

DRUGS (2)
  1. QUETIAPIN?HORMOSAN 25 MG FILMTABLETTEN [Suspect]
     Active Substance: QUETIAPINE
     Indication: DEPRESSION
     Dosage: 75 MG, BEFORE BED AT 11 P.M. PERMANENTLY
     Route: 048
  2. QUETIAPIN?HORMOSAN 200 MG RETARDTABLETTEN [Interacting]
     Active Substance: QUETIAPINE FUMARATE
     Indication: DEPRESSION
     Dosage: 200 MILLIGRAM, QD, EVERY EVENING AT 9 P.M.
     Route: 048

REACTIONS (17)
  - Sedation [Recovering/Resolving]
  - Dry eye [Recovering/Resolving]
  - Drug interaction [Unknown]
  - Depression [Not Recovered/Not Resolved]
  - Musculoskeletal stiffness [Recovering/Resolving]
  - Panic attack [Not Recovered/Not Resolved]
  - Anxiety [Not Recovered/Not Resolved]
  - Mood swings [Recovering/Resolving]
  - Peripheral swelling [Recovering/Resolving]
  - Sleep disorder [Not Recovered/Not Resolved]
  - Nervous system disorder [Not Recovered/Not Resolved]
  - Fatigue [Recovering/Resolving]
  - Dry mouth [Recovering/Resolving]
  - Nasal congestion [Recovering/Resolving]
  - Sensation of blood flow [Recovering/Resolving]
  - Palpitations [Recovering/Resolving]
  - Dizziness [Recovering/Resolving]

NARRATIVE: CASE EVENT DATE: 2021
